FAERS Safety Report 4563658-2 (Version None)
Quarter: 2005Q1

REPORT INFORMATION
  Report Type: 
  Country: None (occurrence: None)
  Receive Date: 20050124
  Receipt Date: 20050112
  Transmission Date: 20050727
  Serious: Yes (Other)
  Sender: FDA-Public Use
  Company Number: 2005-01-1223

PATIENT
  Age: 55 Year
  Sex: Female

DRUGS (7)
  1. GENTAMICIN [Suspect]
     Dosage: 360 MG QD INTRAVENOUS
     Route: 042
  2. AMPICILLIN [Concomitant]
  3. LOSEC CAPSULES [Concomitant]
  4. NAPROSYN [Concomitant]
  5. PREMARIN [Concomitant]
  6. PROVERA [Concomitant]
  7. MACRODANTIN [Concomitant]

REACTIONS (7)
  - DIZZINESS [None]
  - FEELING HOT [None]
  - HYPOAESTHESIA [None]
  - NAUSEA [None]
  - PAIN [None]
  - VERTIGO [None]
  - VOMITING [None]
